FAERS Safety Report 5390524-5 (Version None)
Quarter: 2007Q3

REPORT INFORMATION
  Report Type: 
  Country: None (occurrence: None)
  Receive Date: 20070718
  Receipt Date: 20061228
  Transmission Date: 20080115
  Serious: No
  Sender: FDA-Public Use
  Company Number: US-KINGPHARMUSA00001-K200601637

PATIENT

DRUGS (5)
  1. LEVOXYL [Suspect]
     Indication: HYPOTHYROIDISM
     Dosage: 75 MCG, QD
     Route: 048
     Dates: start: 20050101, end: 20061101
  2. LEVOXYL [Suspect]
     Dosage: 225 MCG, QD
     Route: 048
     Dates: start: 20061101, end: 20061227
  3. METFORMIN HCL [Concomitant]
     Indication: DIABETES MELLITUS
     Dosage: UNK, UNK
     Route: 048
  4. UNKNOWN MEDICATION FOR DIABETES [Concomitant]
     Indication: DIABETES MELLITUS
  5. TWO UNKNOWN MEDICATIONS [Concomitant]

REACTIONS (2)
  - FATIGUE [None]
  - HEART RATE INCREASED [None]
